FAERS Safety Report 17094438 (Version 1)
Quarter: 2019Q4

REPORT INFORMATION
  Report Type: Spontaneous
  Country: FR (occurrence: FR)
  Receive Date: 20191129
  Receipt Date: 20191129
  Transmission Date: 20200122
  Serious: Yes (Hospitalization)
  Sender: FDA-Public Use
  Company Number: NVSC2019FR049472

PATIENT
  Age: 25 Year
  Sex: Male
  Weight: 54 kg

DRUGS (4)
  1. SIRTURO [Concomitant]
     Active Substance: BEDAQUILINE FUMARATE
     Indication: TUBERCULOSIS
     Dosage: 600 MG, QW
     Route: 048
     Dates: start: 20190321, end: 20190816
  2. LAMPRENE [Concomitant]
     Active Substance: CLOFAZIMINE
     Indication: TUBERCULOSIS
     Dosage: 100 MG, QD
     Route: 048
     Dates: start: 20190405, end: 20190816
  3. MOXIFLOXACIN. [Suspect]
     Active Substance: MOXIFLOXACIN
     Indication: TUBERCULOSIS
     Route: 042
     Dates: start: 20190321, end: 20190815
  4. CASPOFUNGIN [Concomitant]
     Active Substance: CASPOFUNGIN
     Indication: SYSTEMIC CANDIDA
     Dosage: 70 MG JOUR 1 PUIS 50 MG/JOUR
     Route: 042
     Dates: start: 20190815, end: 20190829

REACTIONS (1)
  - Hepatocellular injury [Recovered/Resolved]

NARRATIVE: CASE EVENT DATE: 20190815
